FAERS Safety Report 9178627 (Version 1)
Quarter: 2012Q4

REPORT INFORMATION
  Report Type: 
  Country: US (occurrence: US)
  Receive Date: 20121029
  Receipt Date: 20121029
  Transmission Date: 20130627
  Serious: No
  Sender: FDA-Public Use
  Company Number: US-AMGEN-USASP2012053698

PATIENT
  Age: 43 Year
  Sex: Female

DRUGS (31)
  1. ENBREL [Suspect]
     Indication: PRODUCT USED FOR UNKNOWN INDICATION
     Dosage: 50 mg, once weekly
     Route: 058
  2. SINGULAIR [Concomitant]
     Dosage: 10 mg, UNK
  3. PROTONIX [Concomitant]
     Dosage: 20 mg, UNK
  4. ASTELIN                            /00884002/ [Concomitant]
     Dosage: 137 mug, UNK
  5. TOPAMAX [Concomitant]
     Dosage: 25 mg, UNK
  6. PREDNISONE [Concomitant]
     Dosage: 5 mg, UNK
  7. PATADAY [Concomitant]
     Dosage: 0.2 %, UNK
  8. BENEFIBER                          /00677201/ [Concomitant]
     Dosage: UNK
  9. ZYRTEC [Concomitant]
     Dosage: 5 mg, UNK
  10. VISTARIL /00058402/ [Concomitant]
     Dosage: 25 mg, UNK
  11. NEURONTIN [Concomitant]
     Dosage: 100 mg, UNK
  12. DILAUDID [Concomitant]
     Dosage: 2 mg, UNK
  13. RECLAST [Concomitant]
     Dosage: 5/100 ml
  14. ARAVA [Concomitant]
     Dosage: 10 mg, UNK
  15. REGLAN                             /00041901/ [Concomitant]
     Dosage: 5 mg, UNK
  16. TRAZODONE [Concomitant]
     Dosage: 50 mg, UNK
  17. LORAZEPAM [Concomitant]
     Dosage: 1 mg, UNK
  18. ZOFRAN                             /00955301/ [Concomitant]
     Dosage: 4 mg, UNK
  19. WELLBUTRIN XL [Concomitant]
     Dosage: 150 mg, UNK
  20. PROPRANOLOL [Concomitant]
     Dosage: 10 mg, UNK
  21. CRESTOR [Concomitant]
     Dosage: 5 mg, UNK
  22. LEXAPRO [Concomitant]
     Dosage: 5 mg, UNK
  23. NYSTATIN [Concomitant]
  24. COLACE [Concomitant]
     Dosage: 50 mg, UNK
  25. FLEXERIL                           /00428402/ [Concomitant]
     Dosage: 5 mg, UNK
  26. OSTEO BI-FLEX [Concomitant]
     Dosage: 250-200
  27. OXYCONTIN [Concomitant]
     Dosage: 10 mg, UNK
  28. MULTIVITAMIN                       /07504101/ [Concomitant]
  29. FOLIC ACID [Concomitant]
  30. DURAGESIC /00174601/ [Concomitant]
     Dosage: 12 mug/hr
  31. VITAMIN D3 [Concomitant]

REACTIONS (1)
  - Tooth infection [Unknown]
